FAERS Safety Report 18953240 (Version 1)
Quarter: 2021Q1

REPORT INFORMATION
  Report Type: Spontaneous
  Country: US (occurrence: US)
  Receive Date: 20210228
  Receipt Date: 20210228
  Transmission Date: 20210420
  Serious: Yes (Other)
  Sender: FDA-Public Use
  Company Number: None

PATIENT
  Age: 5 Year
  Sex: Male
  Weight: 15.75 kg

DRUGS (2)
  1. MIRALAX [Suspect]
     Active Substance: POLYETHYLENE GLYCOL 3350
     Indication: CONSTIPATION
     Route: 048
     Dates: start: 20210104, end: 20210216
  2. VITAMINE GUMMIES [Concomitant]

REACTIONS (4)
  - Mood altered [None]
  - Intentional self-injury [None]
  - Aggression [None]
  - Crying [None]

NARRATIVE: CASE EVENT DATE: 20210104
